FAERS Safety Report 7338584-6 (Version None)
Quarter: 2011Q1

REPORT INFORMATION
  Report Type: 
  Country: None (occurrence: None)
  Receive Date: 20110308
  Receipt Date: 20110223
  Transmission Date: 20110831
  Serious: Yes (Hospitalization, Other)
  Sender: FDA-Public Use
  Company Number: FR-ELI_LILLY_AND_COMPANY-FR201103001451

PATIENT
  Sex: Male

DRUGS (7)
  1. LEXOMIL [Concomitant]
     Indication: ANXIETY
     Dosage: 0.25 D/F, 2/D
     Route: 048
     Dates: end: 20080204
  2. LEXOMIL [Concomitant]
     Dosage: UNK, UNKNOWN
     Route: 048
  3. ZOLPIDEM [Concomitant]
     Indication: INSOMNIA
     Dosage: 1 D/F, DAILY (1/D)
     Route: 048
     Dates: end: 20080204
  4. ZOLPIDEM [Concomitant]
     Dosage: UNK, UNKNOWN
     Route: 048
  5. FUROSEMIDE [Concomitant]
     Indication: HYPERTENSION
     Dosage: 20 MG, DAILY (1/D)
     Route: 048
  6. CYMBALTA [Suspect]
     Indication: DEPRESSION
     Dosage: 60 MG, DAILY (1/D)
     Route: 048
     Dates: start: 20080118, end: 20080204
  7. RAMIPRIL [Concomitant]
     Indication: HYPERTENSION
     Dosage: 2 D/F, DAILY (1/D)
     Route: 048

REACTIONS (5)
  - MICTURITION URGENCY [None]
  - EXTRAPYRAMIDAL DISORDER [None]
  - FALL [None]
  - BRONCHITIS [None]
  - C-REACTIVE PROTEIN INCREASED [None]
